FAERS Safety Report 7098757-7 (Version None)
Quarter: 2010Q4

REPORT INFORMATION
  Report Type: 
  Country: None (occurrence: None)
  Receive Date: 20101112
  Receipt Date: 20101105
  Transmission Date: 20110411
  Serious: Yes (Hospitalization)
  Sender: FDA-Public Use
  Company Number: FR-ABBOTT-10P-056-0683716-00

PATIENT
  Sex: Female

DRUGS (4)
  1. HUMIRA [Suspect]
     Indication: MUSCULOSKELETAL PAIN
     Route: 058
     Dates: start: 20100701
  2. BIPROFENID PR [Concomitant]
     Indication: MUSCULOSKELETAL PAIN
     Route: 048
     Dates: end: 20101009
  3. CLARITIN [Concomitant]
     Indication: RHINITIS ALLERGIC
     Route: 048
  4. NEXIUM [Concomitant]
     Indication: GASTROOESOPHAGEAL REFLUX DISEASE
     Route: 048

REACTIONS (5)
  - DYSPNOEA EXERTIONAL [None]
  - INFLAMMATION [None]
  - INFLAMMATORY PAIN [None]
  - MIXED CONNECTIVE TISSUE DISEASE [None]
  - PULMONARY EMBOLISM [None]
